FAERS Safety Report 6104344-7 (Version None)
Quarter: 2009Q1

REPORT INFORMATION
  Report Type: 
  Country: None (occurrence: None)
  Receive Date: 20090305
  Receipt Date: 20090221
  Transmission Date: 20090719
  Serious: Yes (Disabling, Other)
  Sender: FDA-Public Use
  Company Number: US-PFIZER INC-2006032522

PATIENT
  Age: 49 Year
  Sex: Female

DRUGS (1)
  1. XANAX [Suspect]
     Dosage: UNK
     Route: 065
     Dates: start: 19960101

REACTIONS (11)
  - BONE NEOPLASM [None]
  - BONE PAIN [None]
  - BRAIN NEOPLASM [None]
  - DISABILITY [None]
  - DRUG DEPENDENCE [None]
  - DRUG INTOLERANCE [None]
  - FEELING ABNORMAL [None]
  - HALLUCINATION [None]
  - MYALGIA [None]
  - NEURALGIA [None]
  - SKIN BURNING SENSATION [None]
